FAERS Safety Report 8250345 (Version 2)
Quarter: 2012Q4

REPORT INFORMATION
  Report Type: 
  Country: US (occurrence: US)
  Receive Date: 20111117
  Receipt Date: 20121023
  Transmission Date: 20130627
  Serious: No
  Sender: FDA-Public Use
  Company Number: US-AMGEN-USASP2011003935

PATIENT
  Age: 64 Year
  Sex: Female
  Weight: 79.82 kg

DRUGS (1)
  1. ENBREL [Suspect]
     Indication: RHEUMATOID ARTHRITIS
     Dosage: 50 mg, qwk
     Dates: start: 20101227

REACTIONS (5)
  - Arthralgia [Not Recovered/Not Resolved]
  - Rheumatoid arthritis [Unknown]
  - Osteoarthritis [Unknown]
  - Drug ineffective [Not Recovered/Not Resolved]
  - Bronchitis [Not Recovered/Not Resolved]
